FAERS Safety Report 9789870 (Version 4)
Quarter: 2014Q1

REPORT INFORMATION
  Report Type: Spontaneous
  Country: FR (occurrence: FR)
  Receive Date: 20131231
  Receipt Date: 20140203
  Transmission Date: 20141002
  Serious: Yes (Life-Threatening, Hospitalization)
  Sender: FDA-Public Use
  Company Number: FR-ROCHE-1326629

PATIENT
  Age: 19 Year
  Sex: Female

DRUGS (6)
  1. ROCEPHINE [Suspect]
     Indication: ANTIBIOTIC PROPHYLAXIS
     Route: 065
     Dates: start: 20131207, end: 20131207
  2. EXACYL [Suspect]
     Indication: POSTPARTUM HAEMORRHAGE
     Route: 042
     Dates: start: 20131207, end: 20131207
  3. NALADOR [Suspect]
     Indication: POSTPARTUM HAEMORRHAGE
     Dosage: 500 UG
     Route: 042
     Dates: start: 20131207, end: 20131207
  4. GENTAMICIN [Suspect]
     Indication: PRODUCT USED FOR UNKNOWN INDICATION
     Route: 065
     Dates: start: 20131207, end: 20131207
  5. TAZOCILLINE [Concomitant]
  6. LEVOFLOXACIN [Concomitant]

REACTIONS (3)
  - Renal cortical necrosis [Recovered/Resolved]
  - Renal failure [Recovered/Resolved]
  - Pulmonary embolism [Recovering/Resolving]
